FAERS Safety Report 8432946-1 (Version None)
Quarter: 2012Q2

REPORT INFORMATION
  Report Type: 
  Country: None (occurrence: None)
  Receive Date: 20120613
  Receipt Date: 20120601
  Transmission Date: 20120825
  Serious: Yes (Other)
  Sender: FDA-Public Use
  Company Number: JP-ROCHE-1075597

PATIENT
  Age: 59 Year
  Sex: Male

DRUGS (12)
  1. CYCLOPHOSPHAMIDE [Suspect]
     Dosage: DOSAGE IS UNCERTAIN.
     Route: 065
  2. MABTHERA [Suspect]
     Dosage: DOSAGE IS UNCERTAIN.
     Route: 065
  3. PREDNISOLONE [Concomitant]
     Dosage: DOSAGE IS UNCERTAIN.
     Route: 065
  4. MABTHERA [Suspect]
     Indication: DIFFUSE LARGE B-CELL LYMPHOMA
     Dosage: DOSAGE IS UNCERTAIN.
     Route: 065
  5. VINCRISTINE [Suspect]
     Indication: DIFFUSE LARGE B-CELL LYMPHOMA
     Dosage: DOSAGE IS UNCERTAIN.
     Route: 065
  6. PREDNISOLONE [Concomitant]
     Dosage: DOSAGE IS UNCERTAIN.
     Route: 065
  7. KYTRIL [Suspect]
     Indication: PRODUCT USED FOR UNKNOWN INDICATION
     Dosage: DOSAGE IS UNCERTAIN.
     Route: 065
  8. KYTRIL [Suspect]
     Dosage: DOSAGE IS UNCERTAIN.
     Route: 065
  9. CYCLOPHOSPHAMIDE [Suspect]
     Indication: DIFFUSE LARGE B-CELL LYMPHOMA
     Dosage: DOSAGE IS UNCERTAIN.
     Route: 065
  10. DOXORUBICIN HYDROCHLORIDE [Suspect]
     Indication: DIFFUSE LARGE B-CELL LYMPHOMA
     Dosage: DOSAGE IS UNCERTAIN.
     Route: 065
  11. VINCRISTINE [Suspect]
     Dosage: DOSAGE IS UNCERTAIN.
     Route: 065
  12. DOXORUBICIN HYDROCHLORIDE [Suspect]
     Dosage: DOSAGE IS UNCERTAIN.
     Route: 065

REACTIONS (1)
  - ILEUS [None]
